FAERS Safety Report 4473079-9 (Version None)
Quarter: 2004Q4

REPORT INFORMATION
  Report Type: 
  Country: None (occurrence: None)
  Receive Date: 20041013
  Receipt Date: 20040928
  Transmission Date: 20050328
  Serious: Yes (Other)
  Sender: FDA-Public Use
  Company Number: AU-MERCK-0410AUS00107

PATIENT

DRUGS (1)
  1. TIMOPTIC [Suspect]
     Route: 047

REACTIONS (3)
  - CATARACT [None]
  - EYE PRURITUS [None]
  - EYE REDNESS [None]
